FAERS Safety Report 21349711 (Version 1)
Quarter: 2022Q3

REPORT INFORMATION
  Report Type: Spontaneous
  Country: US (occurrence: None)
  Receive Date: 20220917
  Receipt Date: 20220917
  Transmission Date: 20221027
  Serious: Yes (Disabling)
  Sender: FDA-Public Use
  Company Number: None

PATIENT
  Age: 45 Year
  Sex: Male
  Weight: 57.15 kg

DRUGS (1)
  1. LEVOFLOXACIN [Suspect]
     Active Substance: LEVOFLOXACIN
     Indication: Epididymitis
     Dates: start: 20220610, end: 20220712

REACTIONS (6)
  - Electric shock sensation [None]
  - Bedridden [None]
  - General physical health deterioration [None]
  - Muscle spasms [None]
  - Neuralgia [None]
  - Product prescribing error [None]

NARRATIVE: CASE EVENT DATE: 20220610
